FAERS Safety Report 10102471 (Version 1)
Quarter: 2014Q2

REPORT INFORMATION
  Report Type: Report from Study
  Country: CN (occurrence: CN)
  Receive Date: 20140424
  Receipt Date: 20140424
  Transmission Date: 20141212
  Serious: Yes (Hospitalization)
  Sender: FDA-Public Use
  Company Number: CN-ROCHE-1383388

PATIENT
  Age: 75 Year
  Sex: Male
  Weight: 55 kg

DRUGS (4)
  1. XELODA [Suspect]
     Indication: RECTAL CANCER
     Route: 048
     Dates: start: 201403, end: 20140323
  2. XELODA [Suspect]
     Route: 048
     Dates: start: 201404, end: 20140406
  3. XELODA [Suspect]
     Route: 048
     Dates: start: 20140407, end: 20140408
  4. XELODA [Suspect]
     Route: 048
     Dates: start: 20140409

REACTIONS (4)
  - Cerebral haemorrhage [Recovered/Resolved]
  - Liver disorder [Unknown]
  - Drug ineffective [Unknown]
  - Abnormal faeces [Not Recovered/Not Resolved]
